FAERS Safety Report 6567781-2 (Version None)
Quarter: 2010Q1

REPORT INFORMATION
  Report Type: 
  Country: None (occurrence: None)
  Receive Date: 20100203
  Receipt Date: 20100125
  Transmission Date: 20100710
  Serious: Yes (Other)
  Sender: FDA-Public Use
  Company Number: FR-ASTRAZENECA-2010SE03931

PATIENT
  Age: 55 Year
  Sex: Male

DRUGS (5)
  1. CRESTOR [Suspect]
     Route: 048
     Dates: start: 20080101, end: 20100108
  2. ESPERAL [Suspect]
     Indication: ALCOHOLISM
     Route: 048
     Dates: start: 20020101
  3. LAMICTAL [Suspect]
     Route: 048
     Dates: start: 20090601
  4. BIPROFENID [Suspect]
     Route: 048
     Dates: start: 20070101, end: 20091225
  5. IXPRIM [Suspect]
     Route: 048
     Dates: start: 20070101, end: 20091225

REACTIONS (1)
  - NEUROPATHY PERIPHERAL [None]
